FAERS Safety Report 22912172 (Version 3)
Quarter: 2024Q4

REPORT INFORMATION
  Report Type: Spontaneous
  Country: DE (occurrence: DE)
  Receive Date: 20230906
  Receipt Date: 20241223
  Transmission Date: 20250114
  Serious: Yes (Hospitalization, Other)
  Sender: SANOFI AVENTIS
  Company Number: DE-PEI-202300034866

PATIENT
  Age: 52 Year
  Sex: Female
  Weight: 85 kg

DRUGS (4)
  1. DUPIXENT [Suspect]
     Active Substance: DUPILUMAB
     Indication: Dermatitis atopic
     Dosage: 300 MG, QOW
     Route: 058
     Dates: start: 20200123
  2. LEVOTHYROXINE SODIUM [Concomitant]
     Active Substance: LEVOTHYROXINE SODIUM
     Indication: Thyroid disorder
     Dosage: 75 MG
     Route: 048
     Dates: start: 201901
  3. CETIRIZINE [Concomitant]
     Active Substance: CETIRIZINE HYDROCHLORIDE
     Indication: Seasonal allergy
     Dosage: 10 MG
     Route: 048
     Dates: start: 2005
  4. DEXA EDO [Concomitant]
     Active Substance: DEXAMETHASONE SODIUM PHOSPHATE
     Indication: Conjunctivitis
     Dosage: UNK UNK, PRN (AS NEEDED)
     Route: 047
     Dates: start: 20200806

REACTIONS (1)
  - Sarcoidosis [Not Recovered/Not Resolved]

NARRATIVE: CASE EVENT DATE: 20230215
